FAERS Safety Report 17845865 (Version 1)
Quarter: 2020Q2

REPORT INFORMATION
  Report Type: Spontaneous
  Country: US (occurrence: US)
  Receive Date: 20200601
  Receipt Date: 20200601
  Transmission Date: 20200714
  Serious: No
  Sender: FDA-Public Use
  Company Number: US-GLAXOSMITHKLINE-US2020089559

PATIENT
  Sex: Female

DRUGS (1)
  1. BENLYSTA [Suspect]
     Active Substance: BELIMUMAB
     Indication: PRODUCT USED FOR UNKNOWN INDICATION
     Dosage: UNK
     Route: 065

REACTIONS (5)
  - Wrong technique in device usage process [Recovered/Resolved]
  - Injection site pain [Recovered/Resolved]
  - Exposure via skin contact [Recovered/Resolved]
  - Incorrect dose administered [Unknown]
  - Accidental exposure to product [Unknown]
